FAERS Safety Report 8549579-9 (Version None)
Quarter: 2012Q3

REPORT INFORMATION
  Report Type: 
  Country: None (occurrence: None)
  Receive Date: 20120730
  Receipt Date: 20120725
  Transmission Date: 20120928
  Serious: Yes (Other)
  Sender: FDA-Public Use
  Company Number: CA-ROCHE-1092567

PATIENT
  Sex: Female
  Weight: 59.02 kg

DRUGS (8)
  1. VITAMIN D [Concomitant]
  2. VITAMIN B-12 [Concomitant]
  3. MABTHERA [Suspect]
     Indication: WEGENER'S GRANULOMATOSIS
     Dosage: DAY 1 AND 15
     Route: 042
     Dates: start: 20120704
  4. WARFARIN SODIUM [Concomitant]
  5. CALCIUM [Concomitant]
  6. GLUCOSAMINE [Concomitant]
  7. VITAMIN E [Concomitant]
  8. PREDNISONE [Concomitant]

REACTIONS (1)
  - BLOOD GLUCOSE ABNORMAL [None]
